FAERS Safety Report 5629098-X (Version None)
Quarter: 2008Q1

REPORT INFORMATION
  Report Type: 
  Country: None (occurrence: None)
  Receive Date: 20080216
  Receipt Date: 20071218
  Transmission Date: 20080703
  Serious: Yes (Other)
  Sender: FDA-Public Use
  Company Number: US-PURDUE-USA_2007_0031626

PATIENT
  Sex: Male
  Weight: 70 kg

DRUGS (2)
  1. OXYCONTIN [Suspect]
     Indication: PAIN
     Dosage: UNK, SEE TEXT
     Route: 048
     Dates: start: 20010101
  2. TYLOX [Concomitant]

REACTIONS (10)
  - ACCIDENT [None]
  - ANXIETY [None]
  - BEREAVEMENT REACTION [None]
  - DELUSION [None]
  - DIZZINESS [None]
  - DRUG DEPENDENCE [None]
  - DRUG WITHDRAWAL SYNDROME [None]
  - INSOMNIA [None]
  - LETHARGY [None]
  - SUICIDE ATTEMPT [None]
